FAERS Safety Report 19888325 (Version 8)
Quarter: 2022Q1

REPORT INFORMATION
  Report Type: Report from Study
  Country: PA (occurrence: PA)
  Receive Date: 20210927
  Receipt Date: 20220327
  Transmission Date: 20220424
  Serious: Yes (Death, Other)
  Sender: FDA-Public Use
  Company Number: NVSC2021PA201386

PATIENT
  Age: 68 Year
  Sex: Female

DRUGS (8)
  1. KISQALI [Suspect]
     Active Substance: RIBOCICLIB
     Indication: Breast cancer metastatic
     Dosage: 600 MG, QD (TAKES 200MG 3 TABLETS DAILY TOGETHER)
     Route: 048
     Dates: start: 20210807, end: 20211015
  2. KISQALI [Suspect]
     Active Substance: RIBOCICLIB
     Dosage: 400 MG, BID
     Route: 048
     Dates: start: 20210807
  3. KISQALI [Suspect]
     Active Substance: RIBOCICLIB
     Dosage: 400 MG, BID
     Route: 048
     Dates: start: 20211015
  4. KISQALI [Suspect]
     Active Substance: RIBOCICLIB
     Dosage: 400 MG, QD
     Route: 048
  5. AROMASIN [Concomitant]
     Active Substance: EXEMESTANE
     Indication: Breast cancer
     Dosage: 25 MG
     Route: 065
  6. AROMASIN [Concomitant]
     Active Substance: EXEMESTANE
     Dosage: UNK, QD
     Route: 065
     Dates: start: 20210807
  7. OXA 1A PHARMA [Concomitant]
     Indication: Arthralgia
     Dosage: 150 MG, QD (SINCE 15 YEARS)
     Route: 065
  8. TRAMADOL [Concomitant]
     Active Substance: TRAMADOL
     Indication: Pain
     Dosage: 50 MG
     Route: 065
     Dates: start: 2017

REACTIONS (28)
  - Sepsis [Fatal]
  - Decreased immune responsiveness [Recovered/Resolved]
  - Erysipelas [Unknown]
  - Cellulitis [Recovering/Resolving]
  - Cerebrovascular accident [Unknown]
  - Shock [Unknown]
  - Metastasis [Recovering/Resolving]
  - Haemoglobin decreased [Recovered/Resolved]
  - Metastases to liver [Recovering/Resolving]
  - Taste disorder [Unknown]
  - Blood iron decreased [Recovering/Resolving]
  - Scab [Recovering/Resolving]
  - Pyrexia [Unknown]
  - Pain in extremity [Unknown]
  - Burning sensation [Unknown]
  - Erythema [Unknown]
  - Frostbite [Unknown]
  - Inappropriate schedule of product administration [Unknown]
  - Product dose omission issue [Unknown]
  - Product supply issue [Unknown]
  - Nail discomfort [Unknown]
  - Disorientation [Unknown]
  - Speech disorder [Unknown]
  - Hyperhidrosis [Unknown]
  - Infection [Unknown]
  - Blister [Unknown]
  - Decreased appetite [Recovering/Resolving]
  - Abdominal pain upper [Unknown]

NARRATIVE: CASE EVENT DATE: 20210801
